FAERS Safety Report 7844736-9 (Version None)
Quarter: 2011Q4

REPORT INFORMATION
  Report Type: 
  Country: None (occurrence: None)
  Receive Date: 20111025
  Receipt Date: 20111012
  Transmission Date: 20120403
  Serious: No
  Sender: FDA-Public Use
  Company Number: US-B.I. PHARMACEUTICALS,INC./RIDGEFIELD-2011-BP-24428PF

PATIENT
  Sex: Female

DRUGS (2)
  1. LYRICA [Suspect]
  2. SPIRIVA [Suspect]

REACTIONS (2)
  - MALAISE [None]
  - PAIN [None]
